FAERS Safety Report 10642434 (Version 3)
Quarter: 2015Q1

REPORT INFORMATION
  Report Type: Report from Study
  Country: CA (occurrence: CA)
  Receive Date: 20141210
  Receipt Date: 20150211
  Transmission Date: 20150720
  Serious: Yes (Other)
  Sender: FDA-Public Use
  Company Number: CA-BAYER-2014-177528

PATIENT
  Age: 86 Year
  Sex: Female
  Weight: 56.69 kg

DRUGS (2)
  1. TRACLEER [Concomitant]
     Active Substance: BOSENTAN\BOSENTAN MONOHYDRATE
  2. ADEMPAS [Suspect]
     Active Substance: RIOCIGUAT
     Indication: PULMONARY HYPERTENSION
     Dosage: 1.0 MG 3 TIMES DAILY
     Route: 048
     Dates: start: 20141117

REACTIONS (1)
  - Oxygen supplementation [Not Recovered/Not Resolved]

NARRATIVE: CASE EVENT DATE: 20141117
